FAERS Safety Report 8912777 (Version 1)
Quarter: 2012Q4

REPORT INFORMATION
  Report Type: 
  Country: SE (occurrence: SE)
  Receive Date: 20121116
  Receipt Date: 20121116
  Transmission Date: 20130627
  Serious: Yes (Hospitalization, Other)
  Sender: FDA-Public Use
  Company Number: SE-PFIZER INC-2012283116

PATIENT
  Age: 66 Year
  Sex: Female
  Weight: 104 kg

DRUGS (13)
  1. GENOTROPIN [Suspect]
     Dosage: 0.27 mg, 1x/day,7 injections/week
     Route: 058
     Dates: start: 19980925
  2. ERGENYL ^LABAZ^ [Concomitant]
     Indication: EPILEPSY
     Dosage: UNK
     Dates: start: 19970404
  3. ERGENYL ^LABAZ^ [Concomitant]
     Indication: CONVULSIONS
  4. ERGENYL ^LABAZ^ [Concomitant]
     Indication: SEIZURE
  5. LAMICTAL ^BURROUGHS WELLCOME^ [Concomitant]
     Indication: EPILEPSY
     Dosage: UNK
     Dates: start: 19970404
  6. LAMICTAL ^BURROUGHS WELLCOME^ [Concomitant]
     Indication: CONVULSIONS
  7. LAMICTAL ^BURROUGHS WELLCOME^ [Concomitant]
     Indication: SEIZURE
  8. LEVOTHYROXINE [Concomitant]
     Indication: BLOOD THYROID STIMULATING HORMONE DECREASED
     Dosage: UNK
     Dates: start: 19970606
  9. LEVOTHYROXINE [Concomitant]
     Indication: PRIMARY HYPOTHYROIDISM
  10. NORMORIX MITE [Concomitant]
     Indication: BLOOD CORTICOTROPHIN DECREASED
     Dosage: UNK
     Dates: start: 19970606
  11. LASIX [Concomitant]
     Indication: URINARY TRACT DISORDER
     Dosage: UNK
     Dates: start: 20010206
  12. CALCIUM GLUBIONATE [Concomitant]
     Indication: OSTEOPOROSIS
     Dosage: UNK
     Dates: start: 20020101
  13. DIDRONATE [Concomitant]
     Indication: OSTEOPOROSIS
     Dosage: UNK
     Dates: start: 20020101

REACTIONS (1)
  - Epilepsy [Unknown]
